FAERS Safety Report 21693334 (Version 1)
Quarter: 2022Q4

REPORT INFORMATION
  Report Type: Spontaneous
  Country: US (occurrence: US)
  Receive Date: 20221207
  Receipt Date: 20221207
  Transmission Date: 20230112
  Serious: No
  Sender: FDA-Public Use
  Company Number: US-SANOFI-01389487

PATIENT
  Age: 40 Year
  Sex: Female

DRUGS (1)
  1. SOLIQUA 100/33 [Suspect]
     Active Substance: INSULIN GLARGINE\LIXISENATIDE
     Indication: Type 2 diabetes mellitus
     Dosage: DOSE IS 25 UNITS AT LUNCH, AND 20 UNITS BEFORE DINNER

REACTIONS (2)
  - Accidental exposure to product [Unknown]
  - Inappropriate schedule of product administration [Unknown]
